FAERS Safety Report 6930370-1 (Version None)
Quarter: 2010Q3

REPORT INFORMATION
  Report Type: 
  Country: None (occurrence: None)
  Receive Date: 20100813
  Receipt Date: 20100802
  Transmission Date: 20110219
  Serious: Yes (Other)
  Sender: FDA-Public Use
  Company Number: 660244

PATIENT
  Age: 62 Year
  Sex: Female

DRUGS (5)
  1. CYTARABINE [Suspect]
     Indication: CENTRAL NERVOUS SYSTEM LYMPHOMA
  2. METHOTREXATE [Suspect]
     Indication: CENTRAL NERVOUS SYSTEM LYMPHOMA
  3. DOXYCYCLINE [Suspect]
     Indication: SEPSIS
  4. FUSIDIC ACID [Concomitant]
  5. VANCOMYCIN HYDROCHLORIDE [Concomitant]

REACTIONS (10)
  - CEREBELLAR SYNDROME [None]
  - CONFUSIONAL STATE [None]
  - HYPOMAGNESAEMIA [None]
  - HYPOPHAGIA [None]
  - MULTI-ORGAN FAILURE [None]
  - NAUSEA [None]
  - PARANEOPLASTIC SYNDROME [None]
  - SEPSIS [None]
  - THROMBOCYTOPENIA [None]
  - VOMITING [None]
